FAERS Safety Report 9174442 (Version 1)
Quarter: 2013Q1

REPORT INFORMATION
  Report Type: Spontaneous
  Country: CA (occurrence: CA)
  Receive Date: 20130320
  Receipt Date: 20130320
  Transmission Date: 20140127
  Serious: Yes (Death, Other)
  Sender: FDA-Public Use
  Company Number: PHHY2013CA027071

PATIENT
  Age: 69 Year
  Sex: Male

DRUGS (1)
  1. SANDOSTATIN LAR [Suspect]
     Indication: ACROMEGALY
     Dosage: 10 MG, ONCE A MONTH
     Route: 030
     Dates: start: 20070917, end: 20130218

REACTIONS (4)
  - Death [Fatal]
  - Embolism [Unknown]
  - Fall [Unknown]
  - Pelvic fracture [Unknown]
